FAERS Safety Report 7299720-3 (Version None)
Quarter: 2011Q1

REPORT INFORMATION
  Report Type: 
  Country: None (occurrence: None)
  Receive Date: 20110209
  Receipt Date: 20110127
  Transmission Date: 20110831
  Serious: Yes (Death, Life-Threatening, Other)
  Sender: FDA-Public Use
  Company Number: DSJ-2011-00695

PATIENT
  Age: 44 Year
  Sex: Female
  Weight: 57 kg

DRUGS (10)
  1. ASPIRIN [Concomitant]
  2. ALLELOCK (OLOPATADINE HYDROCHLORIDE) (OLOPATADINE HYDROCHLORIDE) [Concomitant]
  3. CEREKINON (TRIMEBUTINE MALEATE) (TRIMEBUTINE MALEATE) [Concomitant]
  4. SINGULAIR (MONTELUKAST) (MONTELUKAST) [Concomitant]
  5. OLMETEC (OLMESARTAN MEDOXOMIL) (TABLET) (OLMESARTAN MEDOXOMIL) [Suspect]
     Indication: ESSENTIAL HYPERTENSION
     Dosage: 10 MG,PER ORAL
     Route: 048
     Dates: start: 20100927, end: 20101205
  6. PERSANTIN [Concomitant]
  7. LASIX [Suspect]
     Dosage: 20 MG
     Dates: end: 20101205
  8. AKINETON [Concomitant]
  9. CARDENALIN(DOXAZOSIN MESILATE) (DOXAZOSIN MESILATE) [Suspect]
     Dosage: 1 MG
     Dates: end: 20101205
  10. SERENACE (HALOPERIDOL) (HALOPERIDOL) [Concomitant]

REACTIONS (8)
  - HYPOTENSION [None]
  - SINUS ARRHYTHMIA [None]
  - CEREBRAL ATROPHY [None]
  - CARDIAC FAILURE [None]
  - TACHYCARDIA [None]
  - CONDITION AGGRAVATED [None]
  - HYPOPHAGIA [None]
  - PNEUMONIA ASPIRATION [None]
